FAERS Safety Report 18579432 (Version 1)
Quarter: 2020Q4

REPORT INFORMATION
  Report Type: Report from Study
  Country: US (occurrence: US)
  Receive Date: 20201204
  Receipt Date: 20201204
  Transmission Date: 20210114
  Serious: Yes (Other)
  Sender: FDA-Public Use
  Company Number: US-MYLANLABS-2020M1098925

PATIENT
  Age: 69 Year
  Sex: Male

DRUGS (1)
  1. ITRACONAZOLE. [Suspect]
     Active Substance: ITRACONAZOLE
     Indication: TENOSYNOVITIS
     Dosage: 200 MILLIGRAM, BID
     Route: 065

REACTIONS (3)
  - Off label use [Unknown]
  - Oedema [Recovered/Resolved]
  - Cardiac failure [Recovered/Resolved]
